FAERS Safety Report 6481512-6 (Version None)
Quarter: 2009Q4

REPORT INFORMATION
  Report Type: 
  Country: None (occurrence: None)
  Receive Date: 20091123
  Receipt Date: 20090929
  Transmission Date: 20100525
  Serious: No
  Sender: FDA-Public Use
  Company Number: 8052792

PATIENT
  Age: 37 Year
  Sex: Female
  Weight: 58.2 kg

DRUGS (4)
  1. CIMZIA [Suspect]
     Indication: CROHN'S DISEASE
     Dosage: 400 MG SC
     Route: 058
     Dates: start: 20090521
  2. PENTASA [Concomitant]
  3. ENTOCORT EC [Concomitant]
  4. ZEGERID [Concomitant]

REACTIONS (2)
  - DRUG INEFFECTIVE [None]
  - MENSTRUATION IRREGULAR [None]
